FAERS Safety Report 16053127 (Version 1)
Quarter: 2019Q1

REPORT INFORMATION
  Report Type: Spontaneous
  Country: US (occurrence: US)
  Receive Date: 20190308
  Receipt Date: 20190308
  Transmission Date: 20190418
  Serious: Yes (Death, Hospitalization, Other)
  Sender: FDA-Public Use
  Company Number: US-009507513-1903USA002293

PATIENT
  Age: 68 Year
  Sex: Male

DRUGS (4)
  1. PRINIVIL [Suspect]
     Active Substance: LISINOPRIL
     Dosage: UNK
     Route: 048
  2. CLONAZEPAM. [Suspect]
     Active Substance: CLONAZEPAM
     Dosage: UNK
     Route: 048
  3. ACETAMINOPHEN. [Suspect]
     Active Substance: ACETAMINOPHEN
     Dosage: UNK
     Route: 048
  4. HYDROCHLOROTHIAZIDE (+) TRIAMTERENE [Suspect]
     Active Substance: HYDROCHLOROTHIAZIDE\TRIAMTERENE
     Dosage: UNK
     Route: 048

REACTIONS (3)
  - Suspected suicide attempt [Fatal]
  - Cardiac arrest [Fatal]
  - Respiratory arrest [Fatal]
